FAERS Safety Report 22261871 (Version 1)
Quarter: 2023Q2

REPORT INFORMATION
  Report Type: Report from Study
  Country: CA (occurrence: CA)
  Receive Date: 20230428
  Receipt Date: 20230428
  Transmission Date: 20230722
  Serious: Yes (Hospitalization, Other)
  Sender: FDA-Public Use
  Company Number: CA-JNJFOC-20220602344

PATIENT
  Age: 44 Year
  Sex: Female
  Weight: 73 kg

DRUGS (32)
  1. EPOPROSTENOL SODIUM [Suspect]
     Active Substance: EPOPROSTENOL SODIUM
     Indication: Pulmonary arterial hypertension
     Route: 042
     Dates: start: 20190208, end: 20190908
  2. EPOPROSTENOL SODIUM [Suspect]
     Active Substance: EPOPROSTENOL SODIUM
     Route: 042
     Dates: start: 20190211, end: 20190212
  3. EPOPROSTENOL SODIUM [Suspect]
     Active Substance: EPOPROSTENOL SODIUM
     Route: 042
     Dates: start: 20190212, end: 20190221
  4. EPOPROSTENOL SODIUM [Suspect]
     Active Substance: EPOPROSTENOL SODIUM
     Route: 042
     Dates: start: 20190221, end: 20190305
  5. EPOPROSTENOL SODIUM [Suspect]
     Active Substance: EPOPROSTENOL SODIUM
     Route: 042
     Dates: start: 20190305, end: 20190311
  6. EPOPROSTENOL SODIUM [Suspect]
     Active Substance: EPOPROSTENOL SODIUM
     Route: 042
     Dates: start: 20190311, end: 20220704
  7. EPOPROSTENOL SODIUM [Suspect]
     Active Substance: EPOPROSTENOL SODIUM
     Route: 042
     Dates: start: 20190704, end: 20200903
  8. MACITENTAN [Suspect]
     Active Substance: MACITENTAN
     Indication: Pulmonary arterial hypertension
     Route: 048
     Dates: start: 20190301
  9. SELEXIPAG [Suspect]
     Active Substance: SELEXIPAG
     Indication: Pulmonary arterial hypertension
     Route: 048
     Dates: start: 201908, end: 20190913
  10. SELEXIPAG [Suspect]
     Active Substance: SELEXIPAG
     Route: 048
     Dates: start: 20190913
  11. ADCIRCA [Suspect]
     Active Substance: TADALAFIL
     Indication: Pulmonary arterial hypertension
     Route: 048
     Dates: start: 20190216, end: 202107
  12. RANOLAZINE [Concomitant]
     Active Substance: RANOLAZINE
     Indication: Chest pain
     Route: 048
     Dates: start: 201812, end: 20190204
  13. HYDROCHLOROTHIAZIDE [Concomitant]
     Active Substance: HYDROCHLOROTHIAZIDE
     Indication: Oedema
     Route: 048
     Dates: start: 20181217
  14. BETAMETHASONE [Concomitant]
     Active Substance: BETAMETHASONE
     Indication: Hypersensitivity
     Route: 061
     Dates: start: 20181210
  15. ACETAMINOPHEN [Concomitant]
     Active Substance: ACETAMINOPHEN
     Indication: Pain
     Route: 048
     Dates: start: 20190315
  16. CANDESARTAN [Concomitant]
     Active Substance: CANDESARTAN
     Indication: Ventricular dysfunction
     Route: 048
     Dates: start: 201812, end: 20190204
  17. OXYGEN [Concomitant]
     Active Substance: OXYGEN
     Indication: Hypoxia
     Route: 055
     Dates: start: 20200508
  18. MOMETASONE [Concomitant]
     Active Substance: MOMETASONE
     Indication: Nasal congestion
     Route: 045
     Dates: start: 20181031
  19. SYMBICORT [Concomitant]
     Active Substance: BUDESONIDE\FORMOTEROL FUMARATE DIHYDRATE
     Indication: Dyspnoea
     Route: 055
     Dates: start: 20181210
  20. BECLOMETHASONE [Concomitant]
     Active Substance: BECLOMETHASONE
     Indication: Hypersensitivity
     Route: 061
     Dates: start: 20190315
  21. WARFARIN [Concomitant]
     Active Substance: WARFARIN
     Indication: Pulmonary arterial hypertension
     Route: 048
     Dates: start: 20190315
  22. GRAVOL [Concomitant]
     Active Substance: DIMENHYDRINATE
     Indication: Nausea
     Route: 042
     Dates: start: 20200429, end: 20200508
  23. PANTOPRAZOLE [Concomitant]
     Active Substance: PANTOPRAZOLE
     Indication: Gastrooesophageal reflux disease
     Route: 048
     Dates: start: 20190315
  24. POTASSIUM [Concomitant]
     Active Substance: POTASSIUM
     Indication: Hypokalaemia
     Route: 048
     Dates: start: 20200429
  25. TINZAPARIN SODIUM [Concomitant]
     Active Substance: TINZAPARIN SODIUM
     Indication: Anticoagulant therapy
     Route: 058
     Dates: start: 20200429, end: 20200508
  26. MAGNESIUM GLUCONATE [Concomitant]
     Active Substance: MAGNESIUM GLUCONATE
     Indication: Prophylaxis
     Route: 048
     Dates: start: 20200501
  27. ONDANSETRON [Concomitant]
     Active Substance: ONDANSETRON
     Indication: Nausea
     Route: 048
     Dates: start: 20190315
  28. FUROSEMIDE [Concomitant]
     Active Substance: FUROSEMIDE
     Indication: Pulmonary arterial hypertension
     Route: 048
     Dates: start: 20190315
  29. FUROSEMIDE [Concomitant]
     Active Substance: FUROSEMIDE
     Indication: Oedema
  30. SPIRONOLACTONE [Concomitant]
     Active Substance: SPIRONOLACTONE
     Indication: Oedema peripheral
     Route: 048
     Dates: start: 20200429
  31. POLYSACCHARIDE IRON [Concomitant]
     Indication: Tachycardia
     Route: 048
     Dates: start: 20190724
  32. ADEMPAS [Concomitant]
     Active Substance: RIOCIGUAT
     Indication: Pulmonary arterial hypertension
     Route: 048
     Dates: start: 20210722

REACTIONS (20)
  - Tuberculosis [Not Recovered/Not Resolved]
  - Device related infection [Recovered/Resolved]
  - COVID-19 [Recovered/Resolved]
  - Syncope [Unknown]
  - Hypoxia [Recovered/Resolved]
  - Pulmonary arterial hypertension [Recovered/Resolved]
  - Urinary tract infection [Recovered/Resolved]
  - Right ventricular failure [Unknown]
  - Arrhythmia [Unknown]
  - Cardiorenal syndrome [Not Recovered/Not Resolved]
  - Congestive hepatopathy [Unknown]
  - Influenza like illness [Not Recovered/Not Resolved]
  - Rash pruritic [Recovered/Resolved]
  - Dysmenorrhoea [Unknown]
  - Right ventricular enlargement [Not Recovered/Not Resolved]
  - Product dose omission issue [Unknown]
  - Flushing [Unknown]
  - Chest pain [Not Recovered/Not Resolved]
  - Palpitations [Not Recovered/Not Resolved]
  - Epistaxis [Unknown]

NARRATIVE: CASE EVENT DATE: 20190503
